FAERS Safety Report 5640996-3 (Version None)
Quarter: 2008Q1

REPORT INFORMATION
  Report Type: 
  Country: None (occurrence: None)
  Receive Date: 20080227
  Receipt Date: 20080223
  Transmission Date: 20080703
  Serious: Yes (Other)
  Sender: FDA-Public Use
  Company Number: US-ALLERGAN-0802265US

PATIENT
  Sex: Male

DRUGS (4)
  1. SANCTURA [Suspect]
     Indication: HYPERTONIC BLADDER
     Route: 048
     Dates: start: 20080220
  2. INSULIN [Concomitant]
     Indication: DIABETES MELLITUS
  3. VALTREX [Concomitant]
     Indication: ORAL HERPES
  4. ANDROGEL [Concomitant]

REACTIONS (2)
  - ABDOMINAL PAIN UPPER [None]
  - DIVERTICULITIS [None]
